FAERS Safety Report 8574977 (Version 2)
Quarter: 2014Q1

REPORT INFORMATION
  Report Type: Spontaneous
  Country: US (occurrence: None)
  Receive Date: 20120323
  Receipt Date: 20140306
  Transmission Date: 20141002
  Serious: Yes (Other)
  Sender: FDA-Public Use
  Company Number: 163-21880-11080280

PATIENT
  Age: 61 Year
  Sex: Female
  Weight: 96.62 kg

DRUGS (1)
  1. REVLIMID [Suspect]
     Indication: MYELODYSPLASTIC SYNDROME
     Dosage: 10 MG, 1 IN 1 D, PO
     Route: 048
     Dates: start: 200604, end: 2006

REACTIONS (3)
  - Urticaria [None]
  - Rash [None]
  - Urticaria [None]
